FAERS Safety Report 6929377-X (Version None)
Quarter: 2010Q3

REPORT INFORMATION
  Report Type: 
  Country: None (occurrence: None)
  Receive Date: 20100818
  Receipt Date: 20100810
  Transmission Date: 20110219
  Serious: Yes (Hospitalization)
  Sender: FDA-Public Use
  Company Number: US-BIOGENIDEC-2010BI013951

PATIENT
  Age: 56 Year
  Sex: Female

DRUGS (1)
  1. TYSABRI [Suspect]
     Indication: MULTIPLE SCLEROSIS
     Route: 042
     Dates: start: 20091130

REACTIONS (11)
  - ALOPECIA [None]
  - ARTHRALGIA [None]
  - BLOOD MAGNESIUM DECREASED [None]
  - DIABETES MELLITUS [None]
  - FATIGUE [None]
  - MULTIPLE SCLEROSIS RELAPSE [None]
  - PAIN [None]
  - POOR VENOUS ACCESS [None]
  - RASH [None]
  - SPEECH DISORDER [None]
  - TREMOR [None]
